FAERS Safety Report 12189665 (Version 3)
Quarter: 2016Q2

REPORT INFORMATION
  Report Type: Spontaneous
  Country: US (occurrence: US)
  Receive Date: 20160318
  Receipt Date: 20160419
  Transmission Date: 20160815
  Serious: Yes (Hospitalization, Other)
  Sender: FDA-Public Use
  Company Number: US-AUROBINDO-AUR-APL-2016-03551

PATIENT
  Age: 78 Year
  Sex: Male

DRUGS (8)
  1. SIMVASTATIN. [Interacting]
     Active Substance: SIMVASTATIN
     Indication: PRODUCT USED FOR UNKNOWN INDICATION
     Route: 065
  2. CAPECITABINE. [Interacting]
     Active Substance: CAPECITABINE
     Indication: SQUAMOUS CELL CARCINOMA
     Dosage: ON ALTERNATE WEEKS
     Route: 048
  3. ESOMEPRAZOLE [Suspect]
     Active Substance: ESOMEPRAZOLE
     Indication: PRODUCT USED FOR UNKNOWN INDICATION
     Route: 065
  4. FLUDARABINE [Suspect]
     Active Substance: FLUDARABINE PHOSPHATE
     Indication: PRODUCT USED FOR UNKNOWN INDICATION
     Dosage: 6 CYCLES
     Route: 065
  5. CAPECITABINE. [Interacting]
     Active Substance: CAPECITABINE
     Indication: SKIN CANCER
     Dosage: 750 MG, TWO TIMES A DAY
     Route: 048
  6. PAROXETINE. [Interacting]
     Active Substance: PAROXETINE
     Indication: PRODUCT USED FOR UNKNOWN INDICATION
     Route: 065
  7. RITUXIMAB [Suspect]
     Active Substance: RITUXIMAB
     Indication: PRODUCT USED FOR UNKNOWN INDICATION
     Dosage: 6 CYCLES
     Route: 065
  8. CYCLOPHOSPHAMIDE. [Suspect]
     Active Substance: CYCLOPHOSPHAMIDE
     Indication: PRODUCT USED FOR UNKNOWN INDICATION
     Dosage: 6 CYCLES
     Route: 065

REACTIONS (6)
  - Drug interaction [Unknown]
  - Encephalopathy [Unknown]
  - Off label use [Unknown]
  - Meningitis cryptococcal [Not Recovered/Not Resolved]
  - Nervous system disorder [Unknown]
  - Agitation [Unknown]
